FAERS Safety Report 6851684-X (Version None)
Quarter: 2010Q3

REPORT INFORMATION
  Report Type: 
  Country: None (occurrence: None)
  Receive Date: 20100717
  Receipt Date: 20080716
  Transmission Date: 20110219
  Serious: No
  Sender: FDA-Public Use
  Company Number: US-PFIZER INC-2008005510

PATIENT
  Sex: Female
  Weight: 131.09 kg

DRUGS (14)
  1. CHANTIX [Suspect]
     Indication: SMOKING CESSATION THERAPY
     Route: 048
     Dates: start: 20070901
  2. INSULIN [Concomitant]
     Indication: TYPE 2 DIABETES MELLITUS
  3. LEVOTHYROXINE SODIUM [Concomitant]
     Route: 048
  4. INSULIN LISPRO [Concomitant]
  5. VICODIN [Concomitant]
     Route: 048
  6. HUMULIN R [Concomitant]
  7. LASIX [Concomitant]
     Route: 048
  8. METHADONE HCL [Concomitant]
  9. CYMBALTA [Concomitant]
     Route: 048
  10. CARVEDILOL [Concomitant]
     Route: 048
  11. METFORMIN HCL [Concomitant]
     Route: 048
  12. NITROGLYCERIN [Concomitant]
  13. RANITIDINE [Concomitant]
     Route: 048
  14. VYTORIN [Concomitant]
     Route: 048

REACTIONS (3)
  - MEMORY IMPAIRMENT [None]
  - WEIGHT DECREASED [None]
  - WEIGHT INCREASED [None]
